FAERS Safety Report 9853433 (Version 1)
Quarter: 2014Q1

REPORT INFORMATION
  Report Type: Spontaneous
  Country: US (occurrence: US)
  Receive Date: 20140129
  Receipt Date: 20140129
  Transmission Date: 20141002
  Serious: Yes (Other)
  Sender: FDA-Public Use
  Company Number: US-BAXTER-2014BAX003555

PATIENT
  Age: 60 Year
  Sex: Female
  Weight: 81 kg

DRUGS (3)
  1. GAMMAGARD S/D [Suspect]
     Indication: IMMUNODEFICIENCY
     Dosage: OVER A DURATION OF 3 HOURS
     Route: 042
     Dates: start: 20130201, end: 20130201
  2. GAMMAGARD S/D [Suspect]
     Dosage: OVER A DURATION OF 6.5 HOURS
     Route: 042
     Dates: start: 20130301, end: 20130301
  3. GAMMAGARD S/D [Suspect]
     Dosage: OVER A DURATION OF 4.5 HOURS
     Route: 042
     Dates: start: 20130403, end: 20130403

REACTIONS (8)
  - Meningitis aseptic [Recovered/Resolved]
  - Convulsion [Not Recovered/Not Resolved]
  - Condition aggravated [Not Recovered/Not Resolved]
  - Blindness unilateral [Not Recovered/Not Resolved]
  - Eye pain [Recovering/Resolving]
  - Vomiting [Recovered/Resolved]
  - Hallucination [Recovered/Resolved]
  - Headache [Recovered/Resolved]
